FAERS Safety Report 20795337 (Version 1)
Quarter: 2022Q2

REPORT INFORMATION
  Report Type: Spontaneous
  Country: US (occurrence: US)
  Receive Date: 20220506
  Receipt Date: 20220506
  Transmission Date: 20220721
  Serious: Yes (Hospitalization, Other)
  Sender: FDA-Public Use
  Company Number: US-Accord-262507

PATIENT
  Age: 27 Year
  Sex: Male

DRUGS (11)
  1. CLOZAPINE [Suspect]
     Active Substance: CLOZAPINE
     Indication: Schizoaffective disorder
     Dosage: 50, 100, 125, 150, 200 MG/DAY
  2. QUETIAPINE [Concomitant]
     Active Substance: QUETIAPINE
     Indication: Schizoaffective disorder
  3. ZIPRASIDONE HYDROCHLORIDE [Concomitant]
     Active Substance: ZIPRASIDONE HYDROCHLORIDE
     Indication: Schizoaffective disorder
  4. LITHIUM [Concomitant]
     Active Substance: LITHIUM
     Indication: Schizoaffective disorder
  5. BENZTROPINE [Concomitant]
     Active Substance: BENZTROPINE
     Indication: Schizoaffective disorder
  6. CHLORPROMAZINE [Concomitant]
     Active Substance: CHLORPROMAZINE
  7. DIPHENHYDRAMINE [Concomitant]
     Active Substance: DIPHENHYDRAMINE
  8. RISPERIDONE [Concomitant]
     Active Substance: RISPERIDONE
  9. PALIPERIDONE [Concomitant]
     Active Substance: PALIPERIDONE
  10. LORAZEPAM [Concomitant]
     Active Substance: LORAZEPAM
  11. HALOPERIDOL [Concomitant]
     Active Substance: HALOPERIDOL

REACTIONS (3)
  - Myocarditis [Recovering/Resolving]
  - Drug reaction with eosinophilia and systemic symptoms [Unknown]
  - Pericarditis [Unknown]
